FAERS Safety Report 7264421-4 (Version None)
Quarter: 2011Q1

REPORT INFORMATION
  Report Type: 
  Country: None (occurrence: None)
  Receive Date: 20110119
  Receipt Date: 20110112
  Transmission Date: 20110831
  Serious: Yes (Hospitalization)
  Sender: FDA-Public Use
  Company Number: 023304

PATIENT
  Sex: Female
  Weight: 68.2 kg

DRUGS (29)
  1. CYCLOBENZAPRINE [Concomitant]
  2. AMBIEN [Concomitant]
  3. CODIOVAN [Concomitant]
  4. VITAMIN B-12 [Concomitant]
  5. AZITHROMYCIN [Concomitant]
  6. QUESTRAN [Concomitant]
  7. METOPROLOL TARTRATE [Concomitant]
  8. NEXIUM [Concomitant]
  9. PREDNISONE [Concomitant]
  10. MELOXICAM [Concomitant]
  11. ZITHROMAX [Concomitant]
  12. MEDROL [Concomitant]
  13. ALPRAZOLAM [Concomitant]
  14. LOPERAMIDE [Concomitant]
  15. METRONIDAZOLE [Concomitant]
  16. AGRYLIN [Concomitant]
  17. TRICOR [Concomitant]
  18. LEVAQUIN [Concomitant]
  19. ZOLOFT [Concomitant]
  20. ASACOL [Concomitant]
  21. FOLBIC [Concomitant]
  22. PRILOSEC [Concomitant]
  23. INFLUENZA VACCINE [Concomitant]
  24. CERTOLIZUMAB PEGOL [Suspect]
     Indication: CROHN'S DISEASE
     Dosage: SEE IMAGE
     Route: 058
     Dates: start: 20090713, end: 20090801
  25. CERTOLIZUMAB PEGOL [Suspect]
     Indication: CROHN'S DISEASE
     Dosage: SEE IMAGE
     Route: 058
     Dates: start: 20090801
  26. LIBRAX [Concomitant]
  27. FENOFIBRATE [Concomitant]
  28. LORATADINE [Concomitant]
  29. ROBITUSSIN /00048001/ [Concomitant]

REACTIONS (22)
  - DEHYDRATION [None]
  - PROTEIN TOTAL INCREASED [None]
  - BLOOD PRESSURE INCREASED [None]
  - HYPOKALAEMIA [None]
  - HAEMOGLOBIN DECREASED [None]
  - ANION GAP INCREASED [None]
  - VITAMIN B12 INCREASED [None]
  - HYPOTHYROIDISM [None]
  - RENAL FAILURE ACUTE [None]
  - AZOTAEMIA [None]
  - ESCHERICHIA INFECTION [None]
  - SOFT TISSUE DISORDER [None]
  - BLOOD ALKALINE PHOSPHATASE INCREASED [None]
  - HAEMATOCRIT DECREASED [None]
  - RED BLOOD CELL COUNT DECREASED [None]
  - GASTROENTERITIS [None]
  - ALANINE AMINOTRANSFERASE INCREASED [None]
  - NEPHROLITHIASIS [None]
  - CARBON DIOXIDE DECREASED [None]
  - BACTERIAL TEST POSITIVE [None]
  - HYPERGLYCAEMIA [None]
  - BLOOD CHLORIDE INCREASED [None]
